FAERS Safety Report 8501971-4 (Version None)
Quarter: 2012Q3

REPORT INFORMATION
  Report Type: 
  Country: None (occurrence: None)
  Receive Date: 20120711
  Receipt Date: 20120710
  Transmission Date: 20120928
  Serious: Yes (Death, Hospitalization)
  Sender: FDA-Public Use
  Company Number: PHHY2012AU039692

PATIENT
  Sex: Female

DRUGS (2)
  1. ZOLEDRONOC ACID [Suspect]
     Dosage: 5 MG, YEARLY
     Route: 042
     Dates: start: 20090707
  2. ZOLEDRONOC ACID [Suspect]
     Dosage: 5 MG, YEARLY
     Route: 042
     Dates: start: 20110525

REACTIONS (10)
  - DEATH [None]
  - DIARRHOEA [None]
  - VOMITING [None]
  - MULTI-ORGAN FAILURE [None]
  - MALAISE [None]
  - PNEUMONIA ASPIRATION [None]
  - GASTROENTERITIS NOROVIRUS [None]
  - HYPOPHAGIA [None]
  - NAUSEA [None]
  - DEHYDRATION [None]
